FAERS Safety Report 25217256 (Version 3)
Quarter: 2025Q2

REPORT INFORMATION
  Report Type: Spontaneous
  Country: US (occurrence: US)
  Receive Date: 20250419
  Receipt Date: 20250510
  Transmission Date: 20250716
  Serious: No
  Sender: SANOFI AVENTIS
  Company Number: US-SANOFI-02491411

PATIENT
  Age: 79 Year
  Sex: Female

DRUGS (1)
  1. TOUJEO [Suspect]
     Active Substance: INSULIN GLARGINE
     Indication: Type 2 diabetes mellitus
     Dosage: 52 UNITS IF HER BLOOD SUGAR IS LOW AND 24 UNITS IF HER BLOOD SUGAR IS HIGH, HS
     Route: 058

REACTIONS (5)
  - Hypoacusis [Unknown]
  - Nervousness [Unknown]
  - Blood glucose increased [Unknown]
  - Product dose omission in error [Unknown]
  - Intentional product misuse [Unknown]

NARRATIVE: CASE EVENT DATE: 20250101
